FAERS Safety Report 7282945-0 (Version None)
Quarter: 2011Q1

REPORT INFORMATION
  Report Type: 
  Country: None (occurrence: None)
  Receive Date: 20110209
  Receipt Date: 20110207
  Transmission Date: 20110831
  Serious: Yes (Death)
  Sender: FDA-Public Use
  Company Number: ES-PFIZER INC-2011026866

PATIENT
  Age: 22 Year
  Sex: Male

DRUGS (1)
  1. LYRICA [Suspect]
     Indication: IMPULSIVE BEHAVIOUR
     Dosage: 75 MG, 1X/DAY
     Dates: start: 20100901

REACTIONS (1)
  - DEATH [None]
